FAERS Safety Report 23201263 (Version 1)
Quarter: 2023Q4

REPORT INFORMATION
  Report Type: Spontaneous
  Country: US (occurrence: US)
  Receive Date: 20231118
  Receipt Date: 20231118
  Transmission Date: 20240109
  Serious: Yes (Hospitalization)
  Sender: FDA-Public Use
  Company Number: US-SA-SAC20231117000119

PATIENT
  Sex: Female
  Weight: 154.2 kg

DRUGS (3)
  1. DUPIXENT [Suspect]
     Active Substance: DUPILUMAB
     Indication: Hypergammaglobulinaemia
     Dosage: 300 MG, QOW
     Route: 058
  2. DUPIXENT [Suspect]
     Active Substance: DUPILUMAB
     Indication: Asthma
  3. PREDNISONE [Concomitant]
     Active Substance: PREDNISONE
     Dosage: UNK

REACTIONS (3)
  - Oophorectomy [Unknown]
  - Cyst removal [Unknown]
  - Product use in unapproved indication [Unknown]
